FAERS Safety Report 4808189-7 (Version None)
Quarter: 2005Q4

REPORT INFORMATION
  Report Type: 
  Country: None (occurrence: None)
  Receive Date: 20051020
  Receipt Date: 20021205
  Transmission Date: 20060501
  Serious: No
  Sender: FDA-Public Use
  Company Number: US_021290625

PATIENT
  Age: 49 Year
  Sex: Female

DRUGS (2)
  1. ZYPREXA [Suspect]
     Dosage: 2.5 MG/DAY
     Dates: start: 20011205
  2. WARFARIN [Concomitant]

REACTIONS (1)
  - PROTHROMBIN LEVEL INCREASED [None]
